FAERS Safety Report 8319185-X (Version None)
Quarter: 2012Q2

REPORT INFORMATION
  Report Type: 
  Country: None (occurrence: None)
  Receive Date: 20120427
  Receipt Date: 20120420
  Transmission Date: 20120825
  Serious: Yes (Hospitalization, Disabling, Other)
  Sender: FDA-Public Use
  Company Number: US-MERCK-1106USA02726

PATIENT
  Age: 66 Year
  Sex: Female
  Weight: 64 kg

DRUGS (6)
  1. BONIVA [Suspect]
     Indication: OSTEOPOROSIS
     Route: 065
     Dates: start: 20080101, end: 20110101
  2. FOSAMAX [Suspect]
     Indication: OSTEOPOROSIS
     Route: 048
     Dates: start: 19960101, end: 20110101
  3. SYNTHROID [Concomitant]
     Route: 065
  4. ACTONEL [Suspect]
     Indication: OSTEOPOROSIS
     Route: 065
     Dates: start: 20080101, end: 20100101
  5. FOSAMAX [Suspect]
     Route: 048
     Dates: end: 20110501
  6. LIPITOR [Concomitant]
     Route: 065

REACTIONS (7)
  - PAIN IN EXTREMITY [None]
  - LOW TURNOVER OSTEOPATHY [None]
  - BLOOD DISORDER [None]
  - FEMUR FRACTURE [None]
  - WRIST FRACTURE [None]
  - FALL [None]
  - RIB FRACTURE [None]
